FAERS Safety Report 21979365 (Version 2)
Quarter: 2023Q1

REPORT INFORMATION
  Report Type: Spontaneous
  Country: US (occurrence: US)
  Receive Date: 20230210
  Receipt Date: 20230210
  Transmission Date: 20230417
  Serious: No
  Sender: FDA-Public Use
  Company Number: US-SA-SAC20230203000744

PATIENT
  Sex: Female

DRUGS (4)
  1. AUBAGIO [Suspect]
     Active Substance: TERIFLUNOMIDE
     Indication: Multiple sclerosis
     Dosage: 1 DF, QD
     Route: 048
  2. OXYBUTYNIN [Suspect]
     Active Substance: OXYBUTYNIN
     Dosage: UNK
  3. ESTRADIOL [Concomitant]
     Active Substance: ESTRADIOL
     Dosage: UNK
  4. NORTRIPTYLINE [Concomitant]
     Active Substance: NORTRIPTYLINE
     Dosage: UNK

REACTIONS (16)
  - Malaise [Unknown]
  - Tremor [Unknown]
  - Eye pain [Unknown]
  - Pain in extremity [Unknown]
  - Gait disturbance [Unknown]
  - Balance disorder [Unknown]
  - Speech disorder [Unknown]
  - Memory impairment [Unknown]
  - Aphasia [Unknown]
  - Disturbance in attention [Unknown]
  - Incontinence [Unknown]
  - Pain [Unknown]
  - Hypoaesthesia [Unknown]
  - Bradykinesia [Unknown]
  - Headache [Unknown]
  - Paraesthesia [Unknown]
